APPROVED DRUG PRODUCT: NEXIUM IV
Active Ingredient: ESOMEPRAZOLE SODIUM
Strength: EQ 40MG BASE/VIAL **Federal Register determination that product was not discontinued or withdrawn for safety or effectiveness reasons**
Dosage Form/Route: INJECTABLE;INTRAVENOUS
Application: N021689 | Product #002
Applicant: ASTRAZENECA PHARMACEUTICALS LP
Approved: Mar 31, 2005 | RLD: Yes | RS: No | Type: DISCN